FAERS Safety Report 17048821 (Version 4)
Quarter: 2020Q1

REPORT INFORMATION
  Report Type: Spontaneous
  Country: JP (occurrence: JP)
  Receive Date: 20191119
  Receipt Date: 20200220
  Transmission Date: 20200409
  Serious: Yes (Disabling)
  Sender: FDA-Public Use
  Company Number: JP-ASTRAZENECA-2019SF11259

PATIENT
  Age: 21083 Day
  Sex: Male
  Weight: 84 kg

DRUGS (23)
  1. DIFLAL [Concomitant]
     Indication: PSORIASIS
     Dosage: DOSE UNKNOWN
     Route: 003
  2. METHADERM [Concomitant]
     Active Substance: DEXAMETHASONE DIPROPIONATE
     Indication: PSORIASIS
     Dosage: DOSE UNKNOWN, EAR
     Route: 003
     Dates: start: 20181205
  3. STADERM [Concomitant]
     Indication: PSORIASIS
     Dosage: DOSE UNKNOWN
     Route: 003
  4. OXAROL [Concomitant]
     Active Substance: MAXACALCITOL
     Indication: PSORIASIS
     Dosage: DOSE UNKNOWN, HEAD
     Route: 003
     Dates: start: 20181205
  5. CETIRIZINE HYDROCHLORIDE. [Concomitant]
     Active Substance: CETIRIZINE HYDROCHLORIDE
     Indication: PSORIASIS
     Dosage: DOSE UNKNOWN
     Route: 048
  6. DOVONEX [Concomitant]
     Active Substance: CALCIPOTRIENE
     Indication: PSORIASIS
     Dosage: DOSE UNKNOWN
     Route: 003
  7. LOCOID [Concomitant]
     Active Substance: HYDROCORTISONE BUTYRATE
     Indication: PSORIASIS
     Dosage: DOSE UNKNOWN
     Route: 003
  8. KINDAVATE [Concomitant]
     Active Substance: CLOBETASONE BUTYRATE
     Indication: PSORIASIS
     Dosage: DOSE UNKNOWN, EAR
     Route: 062
     Dates: start: 20181121
  9. KINDALONE [Concomitant]
     Indication: PSORIASIS
     Dosage: DOSE UNKNOWN
     Route: 003
  10. BILANOA [Concomitant]
     Active Substance: BILASTINE
     Indication: PSORIASIS
     Dosage: BEFORE BEDTIME
     Route: 048
     Dates: start: 20181205
  11. POLARAMINE [Concomitant]
     Active Substance: DEXCHLORPHENIRAMINE MALEATE
     Indication: PSORIASIS
     Dosage: DOSE UNKNOWN
     Route: 048
  12. ANTEBATE [Concomitant]
     Active Substance: BETAMETHASONE DIPROPIONATE
     Indication: PSORIASIS
     Dosage: DOSE UNKNOWN, RADIOLOGY DEPARTMENT TWO TIMES A DAY
     Route: 003
     Dates: start: 20190320
  13. BILANOA [Concomitant]
     Active Substance: BILASTINE
     Indication: PSORIASIS
     Dosage: AT FASTING, BEFORE BEDTIME
     Route: 048
     Dates: start: 20190320
  14. PROTOPIC [Concomitant]
     Active Substance: TACROLIMUS
     Indication: PSORIASIS
     Dosage: DOSE UNKNOWN
     Route: 003
  15. DERMOVATE SCALP [Concomitant]
     Active Substance: CLOBETASOL
     Indication: PSORIASIS
     Dosage: DOSE UNKNOWN, HEAD
     Route: 003
     Dates: start: 20190320
  16. DOVOBET [Concomitant]
     Active Substance: BETAMETHASONE\CALCIPOTRIENE
     Indication: PSORIASIS
     Dosage: DOSE UNKNOWN, BODY
     Route: 003
     Dates: start: 20181121
  17. ANTEBATE [Concomitant]
     Active Substance: BETAMETHASONE DIPROPIONATE
     Indication: PSORIASIS
     Dosage: DOSE UNKNOWN
     Route: 003
  18. METHADERM [Concomitant]
     Active Substance: DEXAMETHASONE DIPROPIONATE
     Indication: PSORIASIS
     Dosage: DOSE UNKNOWN
     Route: 003
  19. DERMOVATE SCALP [Concomitant]
     Active Substance: CLOBETASOL
     Indication: PSORIASIS
     Dosage: DOSE UNKNOWN, HEAD
     Route: 003
     Dates: start: 20181205
  20. BILANOA [Concomitant]
     Active Substance: BILASTINE
     Indication: PSORIASIS
     Dosage: BEFORE BEDTIME, AT FASTING
     Route: 048
     Dates: start: 20181121
  21. DOVOBET [Concomitant]
     Active Substance: BETAMETHASONE\CALCIPOTRIENE
     Indication: PSORIASIS
     Dosage: DOSE UNKNOWN, HEAD
     Route: 003
     Dates: start: 20181121
  22. IMFINZI [Suspect]
     Active Substance: DURVALUMAB
     Indication: NON-SMALL CELL LUNG CANCER
     Route: 042
     Dates: start: 20180921, end: 20190626
  23. FULMETA [Concomitant]
     Active Substance: MOMETASONE
     Indication: PSORIASIS
     Dosage: DOSE UNKNOWN
     Route: 003

REACTIONS (9)
  - Malignant neoplasm progression [Unknown]
  - Splenomegaly [Unknown]
  - Psoriasis [Recovering/Resolving]
  - Organising pneumonia [Unknown]
  - Melanocytic naevus [Unknown]
  - Pigmentation disorder [Unknown]
  - Post procedural erythema [Unknown]
  - Radiation pneumonitis [Recovered/Resolved]
  - Skin mass [Unknown]

NARRATIVE: CASE EVENT DATE: 20181023
